FAERS Safety Report 12101703 (Version 1)
Quarter: 2016Q1

REPORT INFORMATION
  Report Type: Report from Study
  Country: BR (occurrence: BR)
  Receive Date: 20160222
  Receipt Date: 20160222
  Transmission Date: 20160526
  Serious: Yes (Hospitalization)
  Sender: FDA-Public Use
  Company Number: BR-BIOGEN-2016BI00191266

PATIENT
  Age: 43 Year
  Sex: Male

DRUGS (4)
  1. RITALINA (METHYLPHENIDRATE) [Concomitant]
     Indication: DEPRESSION
     Route: 065
  2. APETIL (MULTIVITAMINS) [Concomitant]
     Indication: VITAMIN SUPPLEMENTATION
     Route: 065
  3. TYSABRI [Suspect]
     Active Substance: NATALIZUMAB
     Indication: MULTIPLE SCLEROSIS
     Dosage: INFUSED OVER 1 HOUR
     Route: 042
     Dates: start: 2012
  4. CILOSTAZOL. [Concomitant]
     Active Substance: CILOSTAZOL
     Indication: CARDIOVASCULAR DISORDER
     Route: 065

REACTIONS (3)
  - Fatigue [Recovered/Resolved]
  - Weight decreased [Recovered/Resolved]
  - Gait disturbance [Recovered/Resolved]

NARRATIVE: CASE EVENT DATE: 201302
